FAERS Safety Report 20084209 (Version 1)
Quarter: 2021Q4

REPORT INFORMATION
  Report Type: Spontaneous
  Country: NG (occurrence: None)
  Receive Date: 20211118
  Receipt Date: 20211118
  Transmission Date: 20220304
  Serious: Yes (Death, Other)
  Sender: FDA-Public Use
  Company Number: NG-ROCHE-2954634

PATIENT
  Age: 62 Year
  Sex: Female

DRUGS (3)
  1. XELODA [Suspect]
     Active Substance: CAPECITABINE
     Indication: Product used for unknown indication
     Dosage: FREQUENCY: TWICE A DAY EVERY 2 WEEKS
     Route: 048
  2. CYCLOPHOSPHAMIDE [Concomitant]
     Active Substance: CYCLOPHOSPHAMIDE
  3. FLUOROURACIL [Concomitant]
     Active Substance: FLUOROURACIL

REACTIONS (5)
  - Mucosal inflammation [Fatal]
  - Anal ulcer [Unknown]
  - Stomatitis [Unknown]
  - Abdominal pain [Unknown]
  - Eating disorder [Unknown]
